FAERS Safety Report 10577719 (Version 3)
Quarter: 2014Q4

REPORT INFORMATION
  Report Type: Report from Study
  Country: KR (occurrence: KR)
  Receive Date: 20141111
  Receipt Date: 20141215
  Transmission Date: 20150529
  Serious: Yes (Hospitalization)
  Sender: FDA-Public Use
  Company Number: KR-DSJP-DSJ-2013-16223

PATIENT

DRUGS (21)
  1. OLMESARTAN MEDOXOMIL. [Suspect]
     Active Substance: OLMESARTAN MEDOXOMIL
     Indication: ESSENTIAL HYPERTENSION
     Dosage: 40 MG, QD
     Route: 048
     Dates: start: 20121121, end: 20130320
  2. OLMESARTAN MEDOXOMIL. [Suspect]
     Active Substance: OLMESARTAN MEDOXOMIL
     Dosage: 20 MG, QD
     Route: 048
     Dates: start: 20130321, end: 20130331
  3. FEROBA U [Concomitant]
     Dosage: 512MG/DAY
     Route: 048
     Dates: start: 20130401, end: 20130705
  4. CARVEDILOL. [Concomitant]
     Active Substance: CARVEDILOL
     Dosage: UNK
     Route: 065
  5. PREDNISOLONE. [Concomitant]
     Active Substance: PREDNISOLONE
     Dosage: 30MG/DAY
     Route: 048
     Dates: start: 20130425, end: 20130711
  6. BENPROPERINE [Concomitant]
     Active Substance: BENPROPERINE
     Dosage: UNK
     Route: 065
  7. CANDESARTAN [Concomitant]
     Active Substance: CANDESARTAN
     Dosage: UNK
     Route: 065
  8. CANDESARTAN CILEXETIL. [Concomitant]
     Active Substance: CANDESARTAN CILEXETIL
     Dosage: 16MG/DAY
     Route: 048
     Dates: start: 20130401, end: 20130414
  9. DICAMAX [Concomitant]
     Dosage: UNK
     Route: 065
  10. LANSTON [Concomitant]
     Active Substance: LANSOPRAZOLE
     Dosage: 15MG/DAY
     Route: 048
     Dates: start: 20130422, end: 20130528
  11. COUGH                              /00715801/ [Concomitant]
     Dosage: UNK
     Route: 065
  12. HEPARIN [Concomitant]
     Active Substance: HEPARIN SODIUM
     Dosage: UNK
     Route: 065
  13. LANSOPRAZOLE. [Concomitant]
     Active Substance: LANSOPRAZOLE
     Dosage: UNK
     Route: 065
  14. ERDOSTEINE [Concomitant]
     Active Substance: ERDOSTEINE
     Dosage: 900MG/DAY
     Route: 048
     Dates: start: 20130420, end: 20130512
  15. ADALAT [Concomitant]
     Active Substance: NIFEDIPINE
     Dosage: 60MG/DAY
     Route: 048
     Dates: start: 20130513, end: 20130711
  16. TEPRENONE [Concomitant]
     Active Substance: TEPRENONE
     Dosage: UNK
     Route: 065
  17. CEFDITOREN [Concomitant]
     Active Substance: CEFDITOREN
     Dosage: UNK
     Route: 065
  18. OLMESARTAN MEDOXOMIL. [Suspect]
     Active Substance: OLMESARTAN MEDOXOMIL
     Dosage: 20 MG, QD
     Route: 048
     Dates: start: 20130415, end: 20130610
  19. CINALONG [Concomitant]
     Dosage: 10MG/DAY
     Route: 048
     Dates: start: 20130401, end: 20130512
  20. NIFEDIPINE. [Concomitant]
     Active Substance: NIFEDIPINE
     Dosage: UNK
     Route: 065
  21. RAMNOS [Concomitant]
     Dosage: 750MG/DAY
     Route: 048
     Dates: start: 20130420, end: 20130705

REACTIONS (6)
  - Renal impairment [Recovered/Resolved]
  - Cachexia [Recovered/Resolved]
  - Nausea [Recovered/Resolved]
  - Diarrhoea [Recovered/Resolved]
  - Dizziness [Recovered/Resolved]
  - Haemodialysis [Recovered/Resolved]

NARRATIVE: CASE EVENT DATE: 20130401
